FAERS Safety Report 15681238 (Version 5)
Quarter: 2019Q1

REPORT INFORMATION
  Report Type: Spontaneous
  Country: PL (occurrence: PL)
  Receive Date: 20181203
  Receipt Date: 20190123
  Transmission Date: 20190417
  Serious: Yes (Death, Hospitalization, Other)
  Sender: FDA-Public Use
  Company Number: PL-PFIZER INC-2018469132

PATIENT
  Age: 42 Year
  Sex: Female

DRUGS (4)
  1. DACARBAZINE. [Suspect]
     Active Substance: DACARBAZINE
     Indication: SARCOMA METASTATIC
     Dosage: 5 CYCLES (CYVADIC REGIMEN)
     Route: 065
     Dates: start: 201401
  2. VINCRISTINE [Suspect]
     Active Substance: VINCRISTINE
     Indication: SARCOMA METASTATIC
     Dosage: 5 CYCLES (CYVADIC REGIMEN)
     Route: 065
     Dates: start: 201401
  3. DOXORUBICIN HCL [Suspect]
     Active Substance: DOXORUBICIN HYDROCHLORIDE
     Indication: SARCOMA METASTATIC
     Dosage: 5 CYCLES (CYVADIC REGIMEN)
     Route: 065
     Dates: start: 201401
  4. CYCLOPHOSPHAMIDE. [Suspect]
     Active Substance: CYCLOPHOSPHAMIDE
     Indication: SARCOMA METASTATIC
     Dosage: 5 CYCLES (CYVADIC REGIMEN)
     Route: 065
     Dates: start: 201401

REACTIONS (1)
  - Neoplasm progression [Fatal]
